FAERS Safety Report 17100317 (Version 1)
Quarter: 2019Q4

REPORT INFORMATION
  Report Type: Spontaneous
  Country: MX (occurrence: MX)
  Receive Date: 20191202
  Receipt Date: 20191202
  Transmission Date: 20200122
  Serious: Yes (Hospitalization, Other)
  Sender: FDA-Public Use
  Company Number: MX-VALIDUS PHARMACEUTICALS LLC-MX-2019VAL000811

PATIENT

DRUGS (9)
  1. LEVOMEPROMAZINE [Suspect]
     Active Substance: LEVOMEPROMAZINE
     Indication: PRODUCT USED FOR UNKNOWN INDICATION
     Dosage: UNK
     Route: 065
  2. SENNOSIDE B [Concomitant]
     Active Substance: SENNOSIDE B
     Indication: PRODUCT USED FOR UNKNOWN INDICATION
     Dosage: UNK
  3. RIVOTRIL [Concomitant]
     Active Substance: CLONAZEPAM
     Indication: PRODUCT USED FOR UNKNOWN INDICATION
     Dosage: UNK
  4. CLONAZEPAM. [Suspect]
     Active Substance: CLONAZEPAM
     Indication: PRODUCT USED FOR UNKNOWN INDICATION
     Dosage: UNK
     Route: 065
  5. PENTOXIFYLLINE. [Suspect]
     Active Substance: PENTOXIFYLLINE
     Indication: PRODUCT USED FOR UNKNOWN INDICATION
     Dosage: UNK
     Route: 065
  6. LASIX [Suspect]
     Active Substance: FUROSEMIDE
     Indication: PRODUCT USED FOR UNKNOWN INDICATION
     Dosage: UNK
     Route: 065
     Dates: start: 2017
  7. OMEPRAZOLE. [Concomitant]
     Active Substance: OMEPRAZOLE
     Indication: PRODUCT USED FOR UNKNOWN INDICATION
     Dosage: UNK
  8. ENTRESTO [Concomitant]
     Active Substance: SACUBITRIL\VALSARTAN
     Indication: PRODUCT USED FOR UNKNOWN INDICATION
     Dosage: UNK
     Dates: start: 20170306
  9. LEVOPROMAZIN [Concomitant]
     Active Substance: LEVOMEPROMAZINE
     Indication: PRODUCT USED FOR UNKNOWN INDICATION
     Dosage: UNK

REACTIONS (19)
  - Peripheral swelling [Not Recovered/Not Resolved]
  - Pulmonary infarction [Unknown]
  - Chronic kidney disease [Not Recovered/Not Resolved]
  - Sleep disorder [Unknown]
  - Vomiting [Unknown]
  - Constipation [Unknown]
  - Hypotension [Unknown]
  - Gait inability [Unknown]
  - Dizziness [Unknown]
  - Cardiac failure [Unknown]
  - Pulmonary hypertension [Unknown]
  - Varicose vein [Unknown]
  - Tachycardia [Unknown]
  - Fatigue [Unknown]
  - Musculoskeletal disorder [Unknown]
  - Infarction [Unknown]
  - Fluid retention [Not Recovered/Not Resolved]
  - Malaise [Unknown]
  - Haemorrhoids [Unknown]

NARRATIVE: CASE EVENT DATE: 2017
